FAERS Safety Report 23064768 (Version 2)
Quarter: 2024Q1

REPORT INFORMATION
  Report Type: Spontaneous
  Country: DE (occurrence: DE)
  Receive Date: 20231013
  Receipt Date: 20240220
  Transmission Date: 20240410
  Serious: Yes (Life-Threatening, Hospitalization, Other)
  Sender: FDA-Public Use
  Company Number: DE-SAMSUNG BIOEPIS-SB-2023-26304

PATIENT
  Age: 66 Year
  Sex: Male
  Weight: 124 kg

DRUGS (6)
  1. LEUCOVORIN [Suspect]
     Active Substance: LEUCOVORIN\LEUCOVORIN CALCIUM
     Indication: Oesophageal adenocarcinoma
     Dosage: 200MH/M3
     Route: 042
     Dates: start: 20230523, end: 20230705
  2. OXALIPLATIN [Suspect]
     Active Substance: OXALIPLATIN
     Indication: Oesophageal adenocarcinoma
     Dosage: 85MG/M2
     Route: 042
     Dates: start: 20230523, end: 20230705
  3. PEMBROLIZUMAB [Suspect]
     Active Substance: PEMBROLIZUMAB
     Indication: Oesophageal adenocarcinoma
     Route: 042
     Dates: start: 20230523, end: 20230705
  4. FLUOROURACIL [Suspect]
     Active Substance: FLUOROURACIL
     Indication: Oesophageal adenocarcinoma
     Dosage: 2600MG/M2
     Route: 042
     Dates: start: 20230523, end: 20230705
  5. DOCETAXEL [Suspect]
     Active Substance: DOCETAXEL\DOCETAXEL ANHYDROUS
     Indication: Oesophageal adenocarcinoma
     Dosage: 50MG/M2
     Route: 042
     Dates: start: 20230523, end: 20230705
  6. ONTRUZANT [Suspect]
     Active Substance: TRASTUZUMAB-DTTB
     Indication: Oesophageal adenocarcinoma
     Route: 042
     Dates: start: 20230523, end: 20230705

REACTIONS (8)
  - Sepsis [Recovered/Resolved]
  - Hepatic function abnormal [None]
  - Renal failure [None]
  - Anastomotic leak [None]
  - Respiratory failure [None]
  - Circulatory collapse [None]
  - Encephalopathy [None]
  - Product use in unapproved indication [None]

NARRATIVE: CASE EVENT DATE: 20230820
